FAERS Safety Report 4467268-7 (Version None)
Quarter: 2004Q4

REPORT INFORMATION
  Report Type: 
  Country: None (occurrence: None)
  Receive Date: 20041006
  Receipt Date: 20040922
  Transmission Date: 20050328
  Serious: Yes (Death)
  Sender: FDA-Public Use
  Company Number: PHBS2004JP12695

PATIENT
  Age: 50 Year
  Sex: Female
  Weight: 51 kg

DRUGS (6)
  1. VOLTAREN [Suspect]
     Indication: HEADACHE
     Dosage: 12.5 MG, ONCE/SINGLE
     Route: 054
     Dates: start: 20040810, end: 20040810
  2. HEPARIN [Suspect]
     Indication: APHERESIS
     Dosage: 1200 DF, QD
     Route: 042
     Dates: start: 20040804
  3. HEPARIN [Suspect]
     Dosage: 1200 DF, QD
     Route: 042
     Dates: start: 20040806
  4. HEPARIN [Suspect]
     Dosage: 1200 DF, QD
     Route: 042
     Dates: start: 20040810
  5. HEPARIN [Suspect]
     Dosage: 1200 DF, QD
     Route: 042
     Dates: start: 20040812
  6. ALTAT [Suspect]
     Indication: STOMACH DISCOMFORT
     Dosage: 75 MG, QD
     Route: 042
     Dates: start: 20040814

REACTIONS (10)
  - FALL [None]
  - FATIGUE [None]
  - HAEMATOCRIT DECREASED [None]
  - HAEMOGLOBIN DECREASED [None]
  - HAEMORRHAGIC CEREBRAL INFARCTION [None]
  - LOSS OF CONSCIOUSNESS [None]
  - PLATELET COUNT DECREASED [None]
  - PYREXIA [None]
  - RED BLOOD CELL COUNT DECREASED [None]
  - STOMACH DISCOMFORT [None]
